FAERS Safety Report 11166416 (Version 2)
Quarter: 2015Q2

REPORT INFORMATION
  Report Type: Spontaneous
  Country: IT (occurrence: IT)
  Receive Date: 20150605
  Receipt Date: 20150617
  Transmission Date: 20150821
  Serious: Yes (Death, Other)
  Sender: FDA-Public Use
  Company Number: IT-ACCORD-031191

PATIENT
  Age: 75 Year
  Sex: Female
  Weight: 65 kg

DRUGS (10)
  1. CAPECITABINE ACCORD [Suspect]
     Active Substance: CAPECITABINE
     Indication: ADENOCARCINOMA OF COLON
     Route: 048
     Dates: start: 20150421, end: 20150512
  2. OXALIPLATIN SANDOZ [Suspect]
     Active Substance: OXALIPLATIN
     Indication: ADENOCARCINOMA OF COLON
     Route: 042
     Dates: start: 20150421, end: 20150512
  3. DEXAMETHASONE. [Concomitant]
     Active Substance: DEXAMETHASONE
     Route: 042
     Dates: start: 20150421, end: 20150512
  4. ALOXI [Concomitant]
     Active Substance: PALONOSETRON HYDROCHLORIDE
     Dosage: STRENGTH: 250 MCG
     Route: 042
     Dates: start: 20150421, end: 20150512
  5. CRESTOR [Concomitant]
     Active Substance: ROSUVASTATIN CALCIUM
     Dosage: STRENGTH: 10 MG
     Route: 048
  6. CALCIUM GLUCONATE. [Concomitant]
     Active Substance: CALCIUM GLUCONATE
     Route: 042
     Dates: start: 20150421, end: 20150512
  7. GLUTATHIONE/GLUTATHIONE SODIUM [Concomitant]
     Route: 042
     Dates: start: 20150421, end: 20150512
  8. MAGNESIUM SULFATE. [Concomitant]
     Active Substance: MAGNESIUM SULFATE
     Route: 042
  9. BLOPRESS [Concomitant]
     Active Substance: CANDESARTAN CILEXETIL
     Route: 048
  10. AVASTIN [Suspect]
     Active Substance: BEVACIZUMAB
     Indication: ADENOCARCINOMA OF COLON
     Route: 042
     Dates: start: 20150421, end: 20150512

REACTIONS (4)
  - Intestinal perforation [Fatal]
  - Septic shock [Fatal]
  - Renal failure [Unknown]
  - Peritonitis [Fatal]

NARRATIVE: CASE EVENT DATE: 20150518
